FAERS Safety Report 5593962-0 (Version None)
Quarter: 2008Q1

REPORT INFORMATION
  Report Type: 
  Country: None (occurrence: None)
  Receive Date: 20080116
  Receipt Date: 20080108
  Transmission Date: 20080703
  Serious: Yes (Other)
  Sender: FDA-Public Use
  Company Number: CH-ABBOTT-08P-151-0431960-00

PATIENT
  Age: 43 Year
  Sex: Female

DRUGS (1)
  1. KLACID [Suspect]
     Indication: CAMPYLOBACTER INFECTION
     Dosage: 14 TOTAL
     Route: 048
     Dates: start: 20060619, end: 20060627

REACTIONS (1)
  - PREMATURE RUPTURE OF MEMBRANES [None]
